FAERS Safety Report 15819832 (Version 5)
Quarter: 2019Q4

REPORT INFORMATION
  Report Type: Report from Study
  Country: GB (occurrence: GB)
  Receive Date: 20190114
  Receipt Date: 20191104
  Transmission Date: 20200122
  Serious: Yes (Hospitalization, Other)
  Sender: FDA-Public Use
  Company Number: GB-CELLTRION INC.-2019GB017570

PATIENT

DRUGS (22)
  1. TRUXIMA [Suspect]
     Active Substance: RITUXIMAB-ABBS
     Dosage: 800 MG, EVERY 3 WEEKS
     Route: 042
     Dates: start: 20181030, end: 20181030
  2. GAVISCON [ALGINIC ACID;ALUMINIUM HYDROXIDE GEL, DRIED;MAGNESIUM TRISIL [Concomitant]
     Active Substance: ALGINIC ACID\ALUMINUM HYDROXIDE\MAGNESIUM TRISILICATE
     Dosage: 10 MG QDS PRN
     Route: 048
  3. TRUXIMA [Suspect]
     Active Substance: RITUXIMAB-ABBS
     Dosage: 800 MG, EVERY 3 WEEKS
     Route: 042
     Dates: start: 20181231, end: 20181231
  4. LISINOPRIL. [Concomitant]
     Active Substance: LISINOPRIL
     Dosage: 2.5 MG OD
     Route: 048
  5. AMLODIPINE [Concomitant]
     Active Substance: AMLODIPINE BESYLATE
     Dosage: 10 MG OD
     Route: 048
  6. BISOPROLOL [Concomitant]
     Active Substance: BISOPROLOL
     Dosage: 2.5 MG OD
     Route: 048
  7. CODEINE PHOSPHATE [Concomitant]
     Active Substance: CODEINE PHOSPHATE
     Dosage: 30 MG QDS
     Route: 048
  8. TRUXIMA [Suspect]
     Active Substance: RITUXIMAB-ABBS
     Indication: DIFFUSE LARGE B-CELL LYMPHOMA
     Dosage: 800 MG, EVERY 3 WEEKS
     Route: 042
     Dates: start: 20181009, end: 20181009
  9. DOCUSATE [Concomitant]
     Active Substance: DOCUSATE
     Dosage: 100 MG PRN/TDS
     Route: 048
  10. ONDANSETRON [Concomitant]
     Active Substance: ONDANSETRON
     Indication: NAUSEA
     Dosage: 4 MG PRN/TDS FOR 7 DAYS
     Route: 048
  11. TRUXIMA [Suspect]
     Active Substance: RITUXIMAB-ABBS
     Dosage: 700 MG, EVERY 3 WEEKS
     Route: 042
     Dates: start: 20190122, end: 20190122
  12. DOCUSATE [Concomitant]
     Active Substance: DOCUSATE
     Dosage: 100 MG QDS FOR 28 DAYS
     Route: 048
  13. EPIMAX [Concomitant]
     Dosage: APPLY, BD
     Route: 061
  14. TRUXIMA [Suspect]
     Active Substance: RITUXIMAB-ABBS
     Indication: CHEMOTHERAPY
     Dosage: 800 MG, EVERY 3 WEEKS
     Route: 042
     Dates: start: 20181009, end: 20181009
  15. ATORVASTATIN [Concomitant]
     Active Substance: ATORVASTATIN
     Dosage: 40 MG, ON
     Route: 048
  16. AMLODIPINE [Concomitant]
     Active Substance: AMLODIPINE BESYLATE
     Dosage: 5 MG OD FOR 14 DAYS, REASON FOR CHANGE WAS LOW BP
     Route: 048
  17. TRUXIMA [Suspect]
     Active Substance: RITUXIMAB-ABBS
     Dosage: 800 MG, EVERY 3 WEEKS
     Route: 042
     Dates: start: 20181211, end: 20181211
  18. TRUXIMA [Suspect]
     Active Substance: RITUXIMAB-ABBS
     Dosage: 800 MG, EVERY 3 WEEKS
     Route: 042
     Dates: start: 20181231, end: 20181231
  19. ZOPICLONE [Concomitant]
     Active Substance: ZOPICLONE
     Dosage: 3.75 MG , ON
     Route: 048
  20. LANSOPRAZOLE. [Concomitant]
     Active Substance: LANSOPRAZOLE
     Dosage: 30 MG OD
     Route: 048
  21. ASPIRIN. [Concomitant]
     Active Substance: ASPIRIN
     Dosage: 75 MG OD; DISCONTINUED DUE TO BLEEDING RISK
     Route: 048
  22. FILGRASTIM [Concomitant]
     Active Substance: FILGRASTIM
     Dosage: 30 MEGAUNITS, M/W/F
     Route: 058

REACTIONS (9)
  - Neutropenic sepsis [Recovered/Resolved]
  - Urinary tract infection [Not Recovered/Not Resolved]
  - Throat tightness [Recovered/Resolved]
  - Overdose [Unknown]
  - Flushing [Recovered/Resolved]
  - Neutropenic sepsis [Recovered/Resolved]
  - Pulmonary embolism [Recovered/Resolved]
  - Bacteraemia [Not Recovered/Not Resolved]
  - Lower respiratory tract infection [Recovered/Resolved]

NARRATIVE: CASE EVENT DATE: 20181009
